FAERS Safety Report 14079817 (Version 2)
Quarter: 2017Q4

REPORT INFORMATION
  Report Type: Report from Study
  Country: DE (occurrence: DE)
  Receive Date: 20171012
  Receipt Date: 20171121
  Transmission Date: 20180321
  Serious: Yes (Hospitalization)
  Sender: FDA-Public Use
  Company Number: PHHY2017DE146815

PATIENT
  Age: 79 Year
  Sex: Male
  Weight: 84 kg

DRUGS (7)
  1. TORASEMIDE [Concomitant]
     Active Substance: TORSEMIDE
     Indication: PRODUCT USED FOR UNKNOWN INDICATION
     Dosage: 10 OT, QD (0.5-0-0)
     Route: 065
  2. EXJADE [Suspect]
     Active Substance: DEFERASIROX
     Indication: IRON OVERLOAD
     Dosage: 3 DF QD, (17.8 MG/KG/D = 3 INTO 500 MG/D)
     Route: 065
     Dates: start: 20160425, end: 20170403
  3. RAMIPRIL. [Concomitant]
     Active Substance: RAMIPRIL
     Indication: HYPERTENSION
     Dosage: 5 MG, QD (0.5-0-0.5)
     Route: 065
     Dates: start: 2012
  4. EXJADE [Suspect]
     Active Substance: DEFERASIROX
     Dosage: 4 DF QD, (27.02 MG/KG /D = 4 INTO 500 MG/D)
     Route: 065
     Dates: start: 20170404, end: 20170922
  5. BISOPROLOL [Concomitant]
     Active Substance: BISOPROLOL
     Indication: HYPERTENSION
     Dosage: 5 OT, QD (0.5-0-0.5)
     Route: 065
  6. ALLOPURINOL. [Concomitant]
     Active Substance: ALLOPURINOL
     Indication: PRODUCT USED FOR UNKNOWN INDICATION
     Dosage: 300 OT, QD (1 INTO 1)
     Route: 065
     Dates: start: 20160421
  7. IBUPROFEN. [Concomitant]
     Active Substance: IBUPROFEN
     Indication: CHEST PAIN
     Dosage: 400 OT, QD (ON DEMAND)
     Route: 065
     Dates: start: 20160831

REACTIONS (2)
  - Segmental diverticular colitis [Recovered/Resolved]
  - Dehydration [Recovered/Resolved]

NARRATIVE: CASE EVENT DATE: 20170922
